FAERS Safety Report 18152203 (Version 1)
Quarter: 2020Q3

REPORT INFORMATION
  Report Type: Other
  Country: CN (occurrence: CN)
  Receive Date: 20200814
  Receipt Date: 20200814
  Transmission Date: 20201103
  Serious: Yes (Other)
  Sender: FDA-Public Use
  Company Number: CN-ROCHE-2658634

PATIENT

DRUGS (3)
  1. BUTYLPHTHALIDE [Concomitant]
     Active Substance: BUTYLPHTHALIDE
     Indication: CEREBRAL INFARCTION
     Route: 042
  2. SODIUM CHLORIDE. [Concomitant]
     Active Substance: SODIUM CHLORIDE
     Indication: DRUG THERAPY
     Dosage: (0.9% 10ML
     Route: 065
  3. ALTEPLASE. [Suspect]
     Active Substance: ALTEPLASE
     Indication: CEREBRAL INFARCTION
     Dosage: 5 MG IV BOLUS INJECTION WITHIN 10S AND INTRAVENOUS DRIP OF ALTEPLASE 45MG WITHIN 60 MIN
     Route: 042

REACTIONS (1)
  - Drug ineffective [Unknown]
